FAERS Safety Report 25962891 (Version 1)
Quarter: 2025Q4

REPORT INFORMATION
  Report Type: Spontaneous
  Country: AU (occurrence: None)
  Receive Date: 20251026
  Receipt Date: 20251026
  Transmission Date: 20260117
  Serious: Yes (Life-Threatening, Disabling)
  Sender: FDA-CTU
  Company Number: None

PATIENT
  Age: 19 Year
  Sex: Male
  Weight: 68 kg

DRUGS (4)
  1. PRISTIQ EXTENDED-RELEASE [Suspect]
     Active Substance: DESVENLAFAXINE SUCCINATE
     Indication: Depression
     Dates: start: 20221130, end: 20250228
  2. VYVANSE [Concomitant]
     Active Substance: LISDEXAMFETAMINE DIMESYLATE
  3. PRISTIQ EXTENDED-RELEASE [Concomitant]
     Active Substance: DESVENLAFAXINE SUCCINATE
  4. CATAPRES [Concomitant]
     Active Substance: CLONIDINE HYDROCHLORIDE

REACTIONS (17)
  - Depression [None]
  - Intentional self-injury [None]
  - Suicidal ideation [None]
  - Negative thoughts [None]
  - Suicide attempt [None]
  - Drug dependence [None]
  - Feeling guilty [None]
  - Cognitive disorder [None]
  - Paranoia [None]
  - Apathy [None]
  - Nightmare [None]
  - Hallucination, visual [None]
  - Social fear [None]
  - Social problem [None]
  - Tinnitus [None]
  - Attention deficit hyperactivity disorder [None]
  - Anxiety [None]

NARRATIVE: CASE EVENT DATE: 20230301
